FAERS Safety Report 5515435-3 (Version None)
Quarter: 2007Q4

REPORT INFORMATION
  Report Type: 
  Country: None (occurrence: None)
  Receive Date: 20071113
  Receipt Date: 20070215
  Transmission Date: 20080405
  Serious: No
  Sender: FDA-Public Use
  Company Number: A0639707A

PATIENT
  Age: 49 Year
  Sex: Female

DRUGS (6)
  1. COREG [Suspect]
     Dosage: 6.25MG PER DAY
     Route: 048
     Dates: start: 20050101
  2. PLAVIX [Concomitant]
  3. ASPIRIN [Concomitant]
  4. DIOVAN [Concomitant]
  5. INSULIN [Concomitant]
  6. UNKNOWN MEDICATION [Concomitant]

REACTIONS (3)
  - DIZZINESS [None]
  - WEIGHT INCREASED [None]
  - WEIGHT LOSS POOR [None]
